FAERS Safety Report 6239148-8 (Version None)
Quarter: 2009Q2

REPORT INFORMATION
  Report Type: 
  Country: None (occurrence: None)
  Receive Date: 20090622
  Receipt Date: 20090612
  Transmission Date: 20091009
  Serious: Yes (Hospitalization)
  Sender: FDA-Public Use
  Company Number: US-ABBOTT-08P-163-0485452-00

PATIENT
  Sex: Female
  Weight: 78.542 kg

DRUGS (5)
  1. HUMIRA [Suspect]
     Indication: PSORIASIS
     Dates: start: 20081030
  2. HUMIRA [Suspect]
     Indication: PSORIATIC ARTHROPATHY
     Dosage: ON HOLD FOR A PREVIOUS SINUS INFECTION
     Dates: start: 20060412
  3. HUMIRA [Suspect]
     Dates: start: 20090610
  4. XANAX [Suspect]
     Indication: DEPRESSION
  5. XANAX [Suspect]
     Indication: ANXIETY

REACTIONS (8)
  - ANXIETY [None]
  - DEPRESSION [None]
  - EYE DISORDER [None]
  - LOCALISED INFECTION [None]
  - NAIL DISORDER [None]
  - OVERDOSE [None]
  - PAIN OF SKIN [None]
  - SINUSITIS [None]
